FAERS Safety Report 20156416 (Version 1)
Quarter: 2021Q4

REPORT INFORMATION
  Report Type: Spontaneous
  Country: CZ (occurrence: CZ)
  Receive Date: 20211207
  Receipt Date: 20211207
  Transmission Date: 20220303
  Serious: Yes (Other)
  Sender: FDA-Public Use
  Company Number: CZ-AMNEAL PHARMACEUTICALS-2021-AMRX-04804

PATIENT

DRUGS (3)
  1. DEXAMETHASONE SODIUM PHOSPHATE [Suspect]
     Active Substance: DEXAMETHASONE SODIUM PHOSPHATE
     Indication: Plasma cell myeloma
     Dosage: UNK; (20 MG ON DAYS 1, 4, 8, AND 11; 40 MG ON DAYS 15 AND 22; DOSE REDUCED IF AGED ?75 YEARS)
     Route: 048
  2. MELPHALAN FLUFENAMIDE HYDROCHLORIDE [Suspect]
     Active Substance: MELPHALAN FLUFENAMIDE HYDROCHLORIDE
     Indication: Plasma cell myeloma
     Dosage: 40 MILLIGRAM DAY 1 OF EACH 28-DAY CYCLE
     Route: 042
  3. BORTEZOMIB [Suspect]
     Active Substance: BORTEZOMIB
     Indication: Plasma cell myeloma
     Dosage: 1.3 MILLIGRAM/SQ. METER ON DAYS 1, 4, 8, AND 11
     Route: 058

REACTIONS (2)
  - Thrombocytopenia [Unknown]
  - Neutropenia [Unknown]
